FAERS Safety Report 6063098-3 (Version None)
Quarter: 2009Q1

REPORT INFORMATION
  Report Type: 
  Country: None (occurrence: None)
  Receive Date: 20090203
  Receipt Date: 20090130
  Transmission Date: 20090719
  Serious: Yes (Other)
  Sender: FDA-Public Use
  Company Number: PHHY2009JP02471

PATIENT
  Age: 8 Year
  Sex: Male

DRUGS (8)
  1. CYCLOSPORINE [Suspect]
     Indication: ALLOGENIC BONE MARROW TRANSPLANTATION THERAPY
  2. CYCLOSPORINE [Suspect]
     Indication: PROPHYLAXIS AGAINST GRAFT VERSUS HOST DISEASE
  3. METHOTREXATE [Suspect]
     Indication: BONE MARROW TRANSPLANT
  4. METHOTREXATE [Suspect]
     Indication: PROPHYLAXIS AGAINST GRAFT VERSUS HOST DISEASE
  5. MELPHALAN [Concomitant]
     Indication: BONE MARROW TRANSPLANT
  6. ETOPOSIDE [Concomitant]
     Indication: BONE MARROW TRANSPLANT
  7. CARBOPLATIN [Concomitant]
     Indication: BONE MARROW TRANSPLANT
  8. IRRADIATION [Concomitant]
     Indication: BONE MARROW TRANSPLANT

REACTIONS (4)
  - CHRONIC GRAFT VERSUS HOST DISEASE [None]
  - HEPATIC FUNCTION ABNORMAL [None]
  - NODULAR REGENERATIVE HYPERPLASIA [None]
  - RASH [None]
